FAERS Safety Report 10257727 (Version 2)
Quarter: 2014Q2

REPORT INFORMATION
  Report Type: Spontaneous
  Country: JP (occurrence: JP)
  Receive Date: 20140625
  Receipt Date: 20140625
  Transmission Date: 20141212
  Serious: Yes (Death, Hospitalization, Other)
  Sender: FDA-Public Use
  Company Number: JP-ROCHE-1365536

PATIENT
  Age: 49 Year
  Sex: Female
  Weight: 60 kg

DRUGS (13)
  1. PERJETA [Suspect]
     Indication: INFLAMMATORY CARCINOMA OF THE BREAST
     Dosage: 420MG/14ML
     Route: 041
     Dates: start: 20131218
  2. PERJETA [Suspect]
     Route: 041
     Dates: start: 20140108, end: 20140129
  3. HERCEPTIN [Suspect]
     Indication: INFLAMMATORY CARCINOMA OF THE BREAST
     Route: 041
     Dates: start: 20131218, end: 20140129
  4. COCARL [Concomitant]
     Route: 048
     Dates: start: 20131218, end: 20131218
  5. ERIBULIN MESILATE [Concomitant]
     Indication: INFLAMMATORY CARCINOMA OF THE BREAST
     Route: 042
     Dates: start: 20131218, end: 20140129
  6. PYDOXAL [Concomitant]
     Route: 048
     Dates: start: 20131218
  7. LOXONIN [Concomitant]
     Route: 048
     Dates: start: 20131218
  8. SELBEX [Concomitant]
     Route: 048
     Dates: start: 20131218
  9. WARFARIN [Concomitant]
     Indication: JUGULAR VEIN THROMBOSIS
     Route: 048
     Dates: start: 20131218
  10. TALION (JAPAN) [Concomitant]
     Route: 048
     Dates: start: 20131218
  11. ALLERMIST [Concomitant]
     Dosage: DOSAGE IS UNCERTAIN.
     Route: 045
     Dates: start: 20131218
  12. LASIX [Concomitant]
     Dosage: WHEN SWELLING
     Route: 048
     Dates: start: 20140129
  13. ALDACTONE A [Concomitant]
     Dosage: WHEN SWELLING
     Route: 048
     Dates: start: 20140129

REACTIONS (7)
  - Disease progression [Fatal]
  - Cardiac failure [Not Recovered/Not Resolved]
  - Haemoptysis [Unknown]
  - Pulmonary oedema [Not Recovered/Not Resolved]
  - Anaemia [Unknown]
  - Pneumonia [Unknown]
  - Haematuria [Unknown]
